FAERS Safety Report 21364778 (Version 4)
Quarter: 2022Q4

REPORT INFORMATION
  Report Type: Spontaneous
  Country: CA (occurrence: CA)
  Receive Date: 20220922
  Receipt Date: 20221102
  Transmission Date: 20230113
  Serious: Yes (Other)
  Sender: FDA-Public Use
  Company Number: CA-PFIZER INC-202200557554

PATIENT
  Age: 77 Year
  Sex: Female
  Weight: 45 kg

DRUGS (4)
  1. ABRILADA [Suspect]
     Active Substance: ADALIMUMAB-AFZB
     Indication: Crohn^s disease
     Dosage: 40 MG, 2X/WEEK, NOT YET STARTED
     Route: 058
  2. ABRILADA [Suspect]
     Active Substance: ADALIMUMAB-AFZB
     Dosage: 40 MG, EVERY 2 WEEK PREFILLED PEN
     Route: 058
     Dates: start: 20220523, end: 20220919
  3. ABRILADA [Suspect]
     Active Substance: ADALIMUMAB-AFZB
     Dosage: 40 MG, EVERY 2 WEEK PREFILLED PEN
     Route: 058
     Dates: start: 20220919
  4. METHOTREXATE [Concomitant]
     Active Substance: METHOTREXATE
     Dosage: 1 DF,DOSAGE NOT AVAILABLE
     Route: 065

REACTIONS (19)
  - Abdominal pain [Unknown]
  - Back pain [Unknown]
  - Diarrhoea [Not Recovered/Not Resolved]
  - Loss of consciousness [Unknown]
  - Mucous stools [Unknown]
  - Nephrolithiasis [Unknown]
  - Off label use [Unknown]
  - Malaise [Not Recovered/Not Resolved]
  - Limb discomfort [Unknown]
  - Nausea [Recovered/Resolved]
  - Gait disturbance [Unknown]
  - Hypoaesthesia [Unknown]
  - Myalgia [Unknown]
  - Nightmare [Unknown]
  - Tremor [Unknown]
  - Anxiety [Unknown]
  - Rhinorrhoea [Unknown]
  - Illness [Recovered/Resolved]
  - Sinusitis [Unknown]

NARRATIVE: CASE EVENT DATE: 20220101
